FAERS Safety Report 18869562 (Version 2)
Quarter: 2021Q1

REPORT INFORMATION
  Report Type: Other
  Country: CZ (occurrence: CZ)
  Receive Date: 20210210
  Receipt Date: 20210215
  Transmission Date: 20210420
  Serious: Yes (Other)
  Sender: FDA-Public Use
  Company Number: CZ-ROCHE-2763155

PATIENT

DRUGS (5)
  1. EMICIZUMAB. [Suspect]
     Active Substance: EMICIZUMAB
     Indication: HAEMOPHILIA A WITH ANTI FACTOR VIII
     Dosage: 1.5 MG/KG ONCE WEEKLY
     Route: 065
     Dates: start: 20190403
  2. MYCOPHENOLATE MOFETIL. [Suspect]
     Active Substance: MYCOPHENOLATE MOFETIL
     Indication: HAEMOPHILIA A WITH ANTI FACTOR VIII
     Route: 065
     Dates: start: 2018
  3. RITUXIMAB. [Suspect]
     Active Substance: RITUXIMAB
     Indication: HAEMOPHILIA A WITH ANTI FACTOR VIII
     Route: 065
  4. RITUXIMAB. [Suspect]
     Active Substance: RITUXIMAB
     Indication: HAEMOPHILIA A WITH ANTI FACTOR VIII
     Route: 041
     Dates: start: 2018
  5. FACTOR VIII [Suspect]
     Active Substance: ANTIHEMOPHILIC FACTOR HUMAN
     Indication: HAEMOPHILIA A WITH ANTI FACTOR VIII
     Route: 065
     Dates: start: 2018

REACTIONS (7)
  - Eyelid oedema [Recovering/Resolving]
  - Haemorrhage [Recovering/Resolving]
  - Intentional product use issue [Unknown]
  - Haemarthrosis [Recovered/Resolved]
  - Off label use [Unknown]
  - Treatment failure [Unknown]
  - Eyelid bleeding [Recovered/Resolved]

NARRATIVE: CASE EVENT DATE: 2018
